FAERS Safety Report 7404183-0 (Version None)
Quarter: 2011Q2

REPORT INFORMATION
  Report Type: 
  Country: None (occurrence: None)
  Receive Date: 20110408
  Receipt Date: 20110215
  Transmission Date: 20111010
  Serious: Yes (Hospitalization)
  Sender: FDA-Public Use
  Company Number: US-BAYER-201035623NA

PATIENT
  Age: 19 Year
  Sex: Female
  Weight: 84.807 kg

DRUGS (1)
  1. YAZ [Suspect]
     Indication: CONTRACEPTION
     Dosage: 1 TABLET, QD
     Route: 048
     Dates: start: 20080801, end: 20091101

REACTIONS (9)
  - HEPATIC ENZYME INCREASED [None]
  - GALLBLADDER ENLARGEMENT [None]
  - ABDOMINAL PAIN [None]
  - CHOLELITHIASIS [None]
  - WHITE BLOOD CELL COUNT INCREASED [None]
  - MURPHY'S SIGN POSITIVE [None]
  - VOMITING [None]
  - CHOLECYSTITIS [None]
  - NAUSEA [None]
